FAERS Safety Report 8798336 (Version 2)
Quarter: 2015Q1

REPORT INFORMATION
  Report Type: Report from Study
  Country: US (occurrence: US)
  Receive Date: 20120920
  Receipt Date: 20150226
  Transmission Date: 20150721
  Serious: Yes (Death)
  Sender: FDA-Public Use
  Company Number: US-ROCHE-1095440

PATIENT
  Age: 57 Year
  Sex: Female

DRUGS (23)
  1. TARCEVA [Suspect]
     Active Substance: ERLOTINIB HYDROCHLORIDE
     Indication: PRODUCT USED FOR UNKNOWN INDICATION
     Route: 048
     Dates: start: 20061128
  2. PROCRIT [Concomitant]
     Active Substance: ERYTHROPOIETIN
     Route: 058
  3. VITAMIN B12 [Concomitant]
     Active Substance: CYANOCOBALAMIN
  4. DIOVAN [Concomitant]
     Active Substance: VALSARTAN
  5. PREDNISONE. [Concomitant]
     Active Substance: PREDNISONE
  6. PROTONIX (UNITED STATES) [Concomitant]
  7. NAVELBINE [Concomitant]
     Active Substance: VINORELBINE TARTRATE
  8. DEXAMETHASONE. [Concomitant]
     Active Substance: DEXAMETHASONE
  9. AVASTIN [Suspect]
     Active Substance: BEVACIZUMAB
     Route: 042
     Dates: start: 20061214, end: 20061214
  10. ACTIVASE [Concomitant]
     Active Substance: ALTEPLASE
     Route: 042
  11. ATIVAN [Concomitant]
     Active Substance: LORAZEPAM
  12. VALIUM [Concomitant]
     Active Substance: DIAZEPAM
     Route: 065
  13. REGLAN [Concomitant]
     Active Substance: METOCLOPRAMIDE HYDROCHLORIDE
  14. SYNTHROID [Concomitant]
     Active Substance: LEVOTHYROXINE SODIUM
  15. AVASTIN [Suspect]
     Active Substance: BEVACIZUMAB
     Indication: LUNG NEOPLASM MALIGNANT
     Route: 042
     Dates: start: 20061128, end: 20061128
  16. FOLIC ACID. [Concomitant]
     Active Substance: FOLIC ACID
  17. ALBUTEROL. [Concomitant]
     Active Substance: ALBUTEROL
  18. COMPAZINE [Concomitant]
     Active Substance: PROCHLORPERAZINE MALEATE
  19. VICODIN [Concomitant]
     Active Substance: ACETAMINOPHEN\HYDROCODONE BITARTRATE
  20. INFLUENZA VIRUS VACCINE [Concomitant]
     Active Substance: INFLUENZA VIRUS VACCINE
     Dosage: PER 05 ML
     Route: 030
  21. VINORELBINE TARTRATE. [Concomitant]
     Active Substance: VINORELBINE TARTRATE
  22. INDERAL [Concomitant]
     Active Substance: PROPRANOLOL HYDROCHLORIDE
  23. GRANISETRON [Concomitant]
     Active Substance: GRANISETRON

REACTIONS (5)
  - Alopecia [Unknown]
  - Constipation [Unknown]
  - Weight decreased [Unknown]
  - Death [Fatal]
  - Muscular weakness [Unknown]

NARRATIVE: CASE EVENT DATE: 200701
